FAERS Safety Report 7684965-0 (Version None)
Quarter: 2011Q3

REPORT INFORMATION
  Report Type: 
  Country: None (occurrence: None)
  Receive Date: 20110816
  Receipt Date: 20110401
  Transmission Date: 20111222
  Serious: No
  Sender: FDA-Public Use
  Company Number: US-MYLANLABS-2011S1007046

PATIENT
  Age: 45 Year
  Sex: Female

DRUGS (1)
  1. MELOXICAM [Suspect]
     Indication: OSTEOARTHRITIS
     Route: 048
     Dates: start: 20110328, end: 20110330

REACTIONS (3)
  - EYE IRRITATION [None]
  - REACTION TO DRUG EXCIPIENTS [None]
  - OCULAR HYPERAEMIA [None]
